FAERS Safety Report 7135622-0 (Version None)
Quarter: 2010Q4

REPORT INFORMATION
  Report Type: 
  Country: None (occurrence: None)
  Receive Date: 20101203
  Receipt Date: 20101124
  Transmission Date: 20110411
  Serious: Yes (Death, Hospitalization)
  Sender: FDA-Public Use
  Company Number: US-PFIZER INC-2010125591

PATIENT
  Sex: Female

DRUGS (3)
  1. CELEBREX [Suspect]
     Indication: BACK PAIN
     Dosage: UNK
     Dates: start: 20100801
  2. CELEBREX [Suspect]
     Indication: PAIN IN EXTREMITY
  3. CELEBREX [Suspect]
     Indication: SPINAL COLUMN STENOSIS

REACTIONS (3)
  - CIRCULATORY COLLAPSE [None]
  - DEATH [None]
  - HAEMORRHAGE [None]
